FAERS Safety Report 16096238 (Version 1)
Quarter: 2019Q1

REPORT INFORMATION
  Report Type: Spontaneous
  Country: JP (occurrence: JP)
  Receive Date: 20190320
  Receipt Date: 20190320
  Transmission Date: 20190418
  Serious: Yes (Other)
  Sender: FDA-Public Use
  Company Number: JP-BAYER-2019-051776

PATIENT
  Age: 33 Year
  Sex: Female

DRUGS (3)
  1. HEPARIN [Interacting]
     Active Substance: HEPARIN SODIUM
     Indication: ANTIPHOSPHOLIPID SYNDROME
     Dosage: DAILY DOSE 10000 IU
     Route: 058
  2. BAYASPIRIN 100 MG [Suspect]
     Active Substance: ASPIRIN
     Indication: THROMBOSIS PROPHYLAXIS
     Dosage: LOW-DOSE
  3. HEPARIN [Interacting]
     Active Substance: HEPARIN SODIUM
     Indication: THROMBOSIS PROPHYLAXIS
     Dosage: DAILY DOSE 10000 IU
     Route: 058

REACTIONS (5)
  - Product use issue [None]
  - Maternal exposure during pregnancy [None]
  - Off label use [None]
  - Caesarean section [None]
  - Product use in unapproved indication [None]
